FAERS Safety Report 9393612 (Version 2)
Quarter: 2013Q4

REPORT INFORMATION
  Report Type: Spontaneous
  Country: US (occurrence: US)
  Receive Date: 20130710
  Receipt Date: 20131016
  Transmission Date: 20140711
  Serious: Yes (Hospitalization)
  Sender: FDA-Public Use
  Company Number: US-GLAXOSMITHKLINE-A1031817A

PATIENT
  Age: 33 Year
  Sex: Female

DRUGS (1)
  1. ARIXTRA [Suspect]
     Indication: THROMBOSIS PROPHYLAXIS
     Dosage: 10MG UNKNOWN
     Route: 042
     Dates: start: 201303

REACTIONS (5)
  - Pneumonia [Unknown]
  - Pulmonary hypertension [Unknown]
  - Musculoskeletal discomfort [Unknown]
  - Pulmonary thrombosis [Unknown]
  - Thrombosis [Unknown]
